FAERS Safety Report 10791511 (Version 1)
Quarter: 2015Q1

REPORT INFORMATION
  Report Type: Spontaneous
  Country: US (occurrence: US)
  Receive Date: 20150213
  Receipt Date: 20150213
  Transmission Date: 20150721
  Serious: Yes (Hospitalization, Other)
  Sender: FDA-Public Use
  Company Number: US-ASTRAZENECA-2015SE13089

PATIENT
  Age: 56 Year
  Sex: Male

DRUGS (2)
  1. BRILINTA [Suspect]
     Active Substance: TICAGRELOR
     Indication: ANGINA UNSTABLE
     Route: 048
     Dates: start: 20141024
  2. BRILINTA [Suspect]
     Active Substance: TICAGRELOR
     Indication: ANGINA UNSTABLE
     Route: 048
     Dates: start: 20141025, end: 20141103

REACTIONS (4)
  - Off label use [Unknown]
  - Product contamination [Unknown]
  - Thrombosis in device [Unknown]
  - Product use issue [Unknown]

NARRATIVE: CASE EVENT DATE: 20141024
